FAERS Safety Report 16330479 (Version 1)
Quarter: 2019Q2

REPORT INFORMATION
  Report Type: Spontaneous
  Country: BR (occurrence: BR)
  Receive Date: 20190520
  Receipt Date: 20190520
  Transmission Date: 20190711
  Serious: Yes (Other)
  Sender: FDA-Public Use
  Company Number: BR-ACCORD-128244

PATIENT
  Age: 37 Year
  Sex: Female

DRUGS (3)
  1. FLUOROURACIL. [Suspect]
     Active Substance: FLUOROURACIL
     Indication: ADENOCARCINOMA OF COLON
     Dates: start: 201802
  2. FOLINIC ACID [Suspect]
     Active Substance: LEUCOVORIN
     Indication: ADENOCARCINOMA OF COLON
     Dates: start: 201802
  3. IRINOTECAN [Suspect]
     Active Substance: IRINOTECAN
     Indication: ADENOCARCINOMA OF COLON
     Dates: start: 201802

REACTIONS (6)
  - Nutritional condition abnormal [Unknown]
  - Weight decreased [Unknown]
  - Pseudomonas infection [Recovered/Resolved]
  - Gingivitis ulcerative [Recovered/Resolved]
  - Stomatitis [Recovered/Resolved]
  - Oral bacterial infection [Recovered/Resolved]

NARRATIVE: CASE EVENT DATE: 2018
